FAERS Safety Report 4627069-3 (Version None)
Quarter: 2005Q1

REPORT INFORMATION
  Report Type: 
  Country: None (occurrence: None)
  Receive Date: 20050331
  Receipt Date: 20050322
  Transmission Date: 20050727
  Serious: Yes (Disabling, Other)
  Sender: FDA-Public Use
  Company Number: 2005-01-2305

PATIENT
  Age: 72 Year
  Sex: Female
  Weight: 72.5755 kg

DRUGS (5)
  1. CLARINEX [Suspect]
     Indication: HYPERSENSITIVITY
     Dosage: 1 TAB QD ORAL
     Route: 048
     Dates: start: 20000601
  2. KLONOPIN [Concomitant]
  3. MECLIZINE TABLETS [Concomitant]
  4. SYNTHROID [Concomitant]
  5. PREVACID CAPSULES [Concomitant]

REACTIONS (1)
  - BRAIN NEOPLASM [None]
